FAERS Safety Report 25838121 (Version 1)
Quarter: 2025Q3

REPORT INFORMATION
  Report Type: Spontaneous
  Country: US (occurrence: US)
  Receive Date: 20250923
  Receipt Date: 20250923
  Transmission Date: 20251020
  Serious: No
  Sender: ANI
  Company Number: US-ANIPHARMA-2025-US-030752

PATIENT
  Sex: Male

DRUGS (1)
  1. CORTICOTROPIN [Suspect]
     Active Substance: CORTICOTROPIN
     Indication: Product used for unknown indication
     Dates: start: 20250515, end: 20250618

REACTIONS (5)
  - Pain in extremity [Unknown]
  - Back pain [Unknown]
  - Peripheral swelling [Unknown]
  - Immobile [Unknown]
  - Malaise [Unknown]
